FAERS Safety Report 5242055-0 (Version None)
Quarter: 2007Q1

REPORT INFORMATION
  Report Type: 
  Country: None (occurrence: None)
  Receive Date: 20070212
  Receipt Date: 20070130
  Transmission Date: 20070707
  Serious: Yes (Other)
  Sender: FDA-Public Use
  Company Number: CHNY2007US00733

PATIENT
  Age: 79 Year
  Sex: Male

DRUGS (5)
  1. BUCKLEY'S MIXTURE (USA) (NCH) (DEXTROMETHORPHAN HYDROBROMIDE) SYRUP [Suspect]
     Indication: PROPHYLAXIS
     Dosage: 1 TSP, Q96H, ORAL
     Route: 048
  2. TOPROL-XL [Concomitant]
  3. HYZAAR [Concomitant]
  4. LIPITOR [Concomitant]
  5. NORVASC [Concomitant]

REACTIONS (3)
  - DRUG ABUSER [None]
  - INTENTIONAL DRUG MISUSE [None]
  - NO ADVERSE DRUG EFFECT [None]
